FAERS Safety Report 4784539-5 (Version None)
Quarter: 2005Q3

REPORT INFORMATION
  Report Type: 
  Country: None (occurrence: None)
  Receive Date: 20050930
  Receipt Date: 20050913
  Transmission Date: 20060218
  Serious: Yes (Disabling)
  Sender: FDA-Public Use
  Company Number: DE-GLAXOSMITHKLINE-D0047477A

PATIENT
  Age: 61 Year
  Sex: Female
  Weight: 103 kg

DRUGS (2)
  1. AVANDAMET [Suspect]
     Indication: DIABETES MELLITUS
     Dosage: .5TAB TWICE PER DAY
     Route: 048
     Dates: start: 20050718, end: 20050816
  2. METFORMIN [Concomitant]
     Indication: DIABETES MELLITUS
     Route: 065
     Dates: end: 20050101

REACTIONS (7)
  - ASTIGMATISM [None]
  - EYE PRURITUS [None]
  - EYE SWELLING [None]
  - HYPERMETROPIA [None]
  - LACRIMATION DECREASED [None]
  - VISUAL ACUITY REDUCED [None]
  - VITREOUS FLOATERS [None]
